FAERS Safety Report 5949413-7 (Version None)
Quarter: 2008Q4

REPORT INFORMATION
  Report Type: 
  Country: None (occurrence: None)
  Receive Date: 20081112
  Receipt Date: 20081031
  Transmission Date: 20090506
  Serious: Yes (Other)
  Sender: FDA-Public Use
  Company Number: PHHY2008ES26724

PATIENT
  Age: 72 Year
  Sex: Male

DRUGS (1)
  1. MITEN PLUS [Suspect]
     Indication: HYPERTENSION
     Dosage: UNK
     Dates: start: 20060319, end: 20080922

REACTIONS (3)
  - BRADYCARDIA [None]
  - DIZZINESS [None]
  - EXTRASYSTOLES [None]
